FAERS Safety Report 9524837 (Version 1)
Quarter: 2013Q3

REPORT INFORMATION
  Report Type: Spontaneous
  Country: US (occurrence: None)
  Receive Date: 20130912
  Receipt Date: 20130912
  Transmission Date: 20140515
  Serious: Yes (Hospitalization)
  Sender: FDA-Public Use
  Company Number: None

PATIENT
  Age: 53 Year
  Sex: Female
  Weight: 97.52 kg

DRUGS (2)
  1. VYTORIN [Suspect]
     Indication: BLOOD CHOLESTEROL INCREASED
     Dosage: ONE TABLET ONCE DAILY TAKEN BY MOUTH
     Route: 048
     Dates: start: 20130508, end: 20130830
  2. VYTORIN [Suspect]

REACTIONS (9)
  - Faeces pale [None]
  - No therapeutic response [None]
  - Alanine aminotransferase increased [None]
  - Abdominal lymphadenopathy [None]
  - Dehydration [None]
  - Blood potassium decreased [None]
  - Gastritis [None]
  - Diverticulum [None]
  - Colitis microscopic [None]
